FAERS Safety Report 5614678-8 (Version None)
Quarter: 2008Q1

REPORT INFORMATION
  Report Type: 
  Country: None (occurrence: None)
  Receive Date: 20080131
  Receipt Date: 20080117
  Transmission Date: 20080703
  Serious: Yes (Other)
  Sender: FDA-Public Use
  Company Number: US-1165035

PATIENT
  Sex: Female

DRUGS (3)
  1. BSS [Suspect]
     Indication: INTRAOCULAR LENS IMPLANT
     Dosage: (500 ML INTRAOCULAR)
     Route: 031
     Dates: start: 20051012, end: 20051012
  2. MAXITROL [Concomitant]
  3. LIDOCAINE [Concomitant]

REACTIONS (5)
  - CORNEAL OEDEMA [None]
  - IRIS ATROPHY [None]
  - PUPIL FIXED [None]
  - VISION BLURRED [None]
  - VISUAL ACUITY REDUCED [None]
